FAERS Safety Report 25097251 (Version 3)
Quarter: 2025Q3

REPORT INFORMATION
  Report Type: Spontaneous
  Country: CA (occurrence: CA)
  Receive Date: 20250320
  Receipt Date: 20250722
  Transmission Date: 20251020
  Serious: Yes (Death, Life-Threatening, Congenital Anomaly, Other)
  Sender: ABBVIE
  Company Number: CA-LUNDBECK-DKLU4011975

PATIENT

DRUGS (1)
  1. ESCITALOPRAM [Suspect]
     Active Substance: ESCITALOPRAM OXALATE
     Indication: Maternal exposure timing unspecified
     Route: 064

REACTIONS (3)
  - Necrotising enterocolitis neonatal [Fatal]
  - Pneumatosis intestinalis [Fatal]
  - Foetal exposure during pregnancy [Unknown]
